FAERS Safety Report 13431157 (Version 1)
Quarter: 2017Q2

REPORT INFORMATION
  Report Type: Spontaneous
  Country: US (occurrence: US)
  Receive Date: 20170412
  Receipt Date: 20170412
  Transmission Date: 20170830
  Serious: Yes (Disabling)
  Sender: FDA-Public Use
  Company Number: None

PATIENT
  Age: 65 Year
  Sex: Female
  Weight: 66.74 kg

DRUGS (7)
  1. LEVOFLOXACIN TABLETS 750 MG [Suspect]
     Active Substance: LEVOFLOXACIN
     Indication: SINUSITIS
     Dosage: 1 PILL A DAY BY MOUTH
     Route: 048
  2. SYNTHROID [Concomitant]
     Active Substance: LEVOTHYROXINE SODIUM
  3. FLUOXETINE [Concomitant]
     Active Substance: FLUOXETINE HYDROCHLORIDE
  4. MULTI VITAMIN [Concomitant]
     Active Substance: VITAMINS
  5. VITAMIN C [Concomitant]
     Active Substance: ASCORBIC ACID
  6. ANTACID [Concomitant]
     Active Substance: ALUMINUM HYDROXIDE\CALCIUM CARBONATE\DIMETHICONE\MAGNESIUM HYDROXIDE
  7. IBUPROFEN. [Concomitant]
     Active Substance: IBUPROFEN

REACTIONS (10)
  - Gait disturbance [None]
  - Anxiety [None]
  - Insomnia [None]
  - Tendon injury [None]
  - Arthralgia [None]
  - Tendonitis [None]
  - Blood pressure increased [None]
  - Tinnitus [None]
  - Muscle strain [None]
  - Depression [None]

NARRATIVE: CASE EVENT DATE: 20170312
